FAERS Safety Report 6721425-5 (Version None)
Quarter: 2010Q2

REPORT INFORMATION
  Report Type: 
  Country: None (occurrence: None)
  Receive Date: 20100512
  Receipt Date: 20100503
  Transmission Date: 20101027
  Serious: Yes (Hospitalization)
  Sender: FDA-Public Use
  Company Number: US-BRISTOL-MYERS SQUIBB COMPANY-15089170

PATIENT
  Age: 77 Year
  Sex: Female

DRUGS (4)
  1. METOPROLOL TARTRATE [Suspect]
     Indication: HYPERTENSIVE CRISIS
  2. METOPROLOL TARTRATE [Suspect]
     Indication: ACUTE CORONARY SYNDROME
  3. ASPIRIN [Suspect]
     Indication: ANTICOAGULANT THERAPY
  4. ENOXAPARIN SODIUM [Suspect]
     Indication: ANTICOAGULANT THERAPY

REACTIONS (1)
  - HAEMATOMA [None]
